FAERS Safety Report 6664526-2 (Version None)
Quarter: 2010Q2

REPORT INFORMATION
  Report Type: 
  Country: None (occurrence: None)
  Receive Date: 20100401
  Receipt Date: 20100323
  Transmission Date: 20101027
  Serious: Yes (Life-Threatening, Hospitalization, Other)
  Sender: FDA-Public Use
  Company Number: AT-ABBOTT-10P-009-0631523-00

PATIENT
  Sex: Female
  Weight: 95 kg

DRUGS (2)
  1. HUMIRA [Suspect]
     Indication: CROHN'S DISEASE
     Dosage: 80MG INDUCTION DOSE
     Route: 058
     Dates: start: 20090320, end: 20090320
  2. HUMIRA [Suspect]

REACTIONS (1)
  - SMALL INTESTINAL PERFORATION [None]
